FAERS Safety Report 13144042 (Version 1)
Quarter: 2017Q1

REPORT INFORMATION
  Report Type: Spontaneous
  Country: GB (occurrence: GB)
  Receive Date: 20170124
  Receipt Date: 20170124
  Transmission Date: 20170428
  Serious: Yes (Other)
  Sender: FDA-Public Use
  Company Number: GB-TEVA-731328ACC

PATIENT
  Age: 20 Year
  Sex: Male
  Weight: 70 kg

DRUGS (7)
  1. NOVO NORDISK A/S GLUCAGON [Concomitant]
     Dosage: USE AS DIRECTED
     Dates: start: 20151002
  2. INFLUENZA VIRUS [Concomitant]
     Active Substance: INFLUENZA VIRUS VACCINE
     Dosage: IMMEDIATELY
     Dates: start: 20161115, end: 20161115
  3. NOVORAPID [Concomitant]
     Active Substance: INSULIN ASPART
     Dosage: 1 UNIT FOR 5G FOR ALL MEALS
     Dates: start: 20151002
  4. ERYTHROMYCIN. [Suspect]
     Active Substance: ERYTHROMYCIN
     Indication: ACNE
     Dates: start: 20170106
  5. LEVEMIR [Concomitant]
     Active Substance: INSULIN DETEMIR
     Dosage: 12 UNITS IN THE MORNING, 10 UNITS AT NIGHT
     Dates: start: 20151002
  6. LYMECYCLINE [Concomitant]
     Active Substance: LYMECYCLINE
     Dosage: USE AS DIRECTED
     Dates: start: 20151002
  7. BENZOYL PEROXIDE. [Concomitant]
     Active Substance: BENZOYL PEROXIDE
     Dosage: 1 DOSAGE FORMS DAILY;
     Dates: start: 20151002

REACTIONS (1)
  - Hypoglycaemia [Recovered/Resolved]

NARRATIVE: CASE EVENT DATE: 20170106
